FAERS Safety Report 10248716 (Version 1)
Quarter: 2014Q2

REPORT INFORMATION
  Report Type: Spontaneous
  Country: US (occurrence: None)
  Receive Date: 20140618
  Receipt Date: 20140618
  Transmission Date: 20141212
  Serious: No
  Sender: FDA-Public Use
  Company Number: None

PATIENT
  Age: 60 Year
  Sex: Female
  Weight: 58.06 kg

DRUGS (2)
  1. METHYLPREDNISONE [Suspect]
     Indication: CONNECTIVE TISSUE DISORDER
     Route: 048
     Dates: start: 20110526
  2. METHYLPREDNISONE [Suspect]
     Route: 048
     Dates: start: 20110526

REACTIONS (1)
  - Abdominal discomfort [None]
